FAERS Safety Report 16641663 (Version 1)
Quarter: 2019Q3

REPORT INFORMATION
  Report Type: Report from Study
  Country: CA (occurrence: CA)
  Receive Date: 20190729
  Receipt Date: 20190729
  Transmission Date: 20191004
  Serious: Yes (Other)
  Sender: FDA-Public Use
  Company Number: CA-BRISTOL-MYERS SQUIBB COMPANY-BMS-2018-113821

PATIENT
  Age: 55 Year
  Sex: Female

DRUGS (1)
  1. ABATACEPT [Suspect]
     Active Substance: ABATACEPT
     Indication: RHEUMATOID ARTHRITIS
     Dosage: 1000 MILLIGRAM, QMO
     Route: 065
     Dates: start: 20181122

REACTIONS (8)
  - Tooth disorder [Recovered/Resolved]
  - Anxiety [Unknown]
  - Arthropathy [Unknown]
  - Cough [Recovering/Resolving]
  - Nasopharyngitis [Recovering/Resolving]
  - Respiratory tract congestion [Recovering/Resolving]
  - Cardiac murmur [Unknown]
  - Depression [Unknown]

NARRATIVE: CASE EVENT DATE: 20181122
